FAERS Safety Report 13824712 (Version 4)
Quarter: 2017Q3

REPORT INFORMATION
  Report Type: Report from Study
  Country: US (occurrence: US)
  Receive Date: 20170802
  Receipt Date: 20170822
  Transmission Date: 20171127
  Serious: Yes (Hospitalization, Other)
  Sender: FDA-Public Use
  Company Number: US-GILEAD-2017-0283897

PATIENT
  Age: 31 Year
  Sex: Female

DRUGS (5)
  1. AMBRISENTAN [Suspect]
     Active Substance: AMBRISENTAN
     Indication: PRODUCT USED FOR UNKNOWN INDICATION
     Dosage: 10 MG, QD
     Route: 065
     Dates: start: 20140807
  2. REMODULIN [Concomitant]
     Active Substance: TREPROSTINIL
     Dosage: 57 NG PER KG PER MINUTE
  3. SILDENAFIL CITRATE. [Concomitant]
     Active Substance: SILDENAFIL CITRATE
  4. REVATIO [Concomitant]
     Active Substance: SILDENAFIL CITRATE
  5. COUMADIN [Concomitant]
     Active Substance: WARFARIN SODIUM

REACTIONS (6)
  - Device leakage [Unknown]
  - Dyspnoea [Unknown]
  - Abdominal pain [Unknown]
  - Abdominal distension [Unknown]
  - Asthenia [Unknown]
  - Right ventricular failure [Unknown]
